FAERS Safety Report 10032433 (Version 1)
Quarter: 2014Q1

REPORT INFORMATION
  Report Type: Spontaneous
  Country: None (occurrence: None)
  Receive Date: 20140320
  Receipt Date: 20140320
  Transmission Date: 20141002
  Serious: Yes (Life-Threatening, Hospitalization)
  Sender: FDA-Public Use
  Company Number: 2014-AU-000007

PATIENT
  Age: 32 Year
  Sex: 0

DRUGS (3)
  1. DOXYCYCLINE [Suspect]
     Route: 048
     Dates: start: 20131110, end: 20131110
  2. OSELTAMIVIR [Suspect]
     Dates: start: 20131109
  3. AZITHROMYCIN [Suspect]
     Route: 042
     Dates: start: 20131109

REACTIONS (3)
  - Blister [None]
  - Rash [None]
  - Erythema [None]
